FAERS Safety Report 7313801-7 (Version None)
Quarter: 2011Q1

REPORT INFORMATION
  Report Type: 
  Country: None (occurrence: None)
  Receive Date: 20110225
  Receipt Date: 20110218
  Transmission Date: 20110831
  Serious: Yes (Other)
  Sender: FDA-Public Use
  Company Number: FR-PFIZER INC-2011037383

PATIENT
  Age: 80 Year
  Sex: Female

DRUGS (6)
  1. TENORMIN [Concomitant]
     Dosage: UNK
  2. LEVOTHYROX [Concomitant]
     Dosage: UNK
  3. TAHOR [Suspect]
     Dosage: UNK
  4. ASPIRIN [Concomitant]
     Dosage: UNK
  5. COVERSYL [Concomitant]
     Dosage: UNK
  6. AMLOR [Concomitant]
     Dosage: UNK

REACTIONS (2)
  - HEPATITIS [None]
  - ACUTE CORONARY SYNDROME [None]
